FAERS Safety Report 20894021 (Version 1)
Quarter: 2022Q2

REPORT INFORMATION
  Report Type: Spontaneous
  Country: US (occurrence: None)
  Receive Date: 20220527
  Receipt Date: 20220527
  Transmission Date: 20220721
  Serious: Yes (Hospitalization)
  Sender: FDA-Public Use
  Company Number: None

PATIENT
  Sex: Male

DRUGS (3)
  1. ENVARSUS XR [Suspect]
     Active Substance: TACROLIMUS
  2. ENVARSUS XR [Suspect]
     Active Substance: TACROLIMUS
  3. MYCOPHENOLIC ACID DR [Concomitant]

REACTIONS (2)
  - Pneumonia [None]
  - Bronchitis [None]
